FAERS Safety Report 7069499-9 (Version None)
Quarter: 2010Q4

REPORT INFORMATION
  Report Type: 
  Country: None (occurrence: None)
  Receive Date: 20101028
  Receipt Date: 20100113
  Transmission Date: 20110411
  Serious: No
  Sender: FDA-Public Use
  Company Number: US-WYE-H12981310

PATIENT
  Age: 46 Year
  Sex: Female
  Weight: 90.8 kg

DRUGS (2)
  1. ADVIL COLD AND SINUS [Suspect]
     Indication: NASOPHARYNGITIS
     Dosage: 1 LIQUI-GEL 1 TIME
     Route: 048
     Dates: start: 20100106, end: 20100106
  2. ADVIL COLD AND SINUS [Suspect]
     Indication: SINUS CONGESTION

REACTIONS (2)
  - ABDOMINAL PAIN UPPER [None]
  - DYSPEPSIA [None]
